FAERS Safety Report 7974265-3 (Version None)
Quarter: 2011Q4

REPORT INFORMATION
  Report Type: 
  Country: None (occurrence: None)
  Receive Date: 20111209
  Receipt Date: 20111129
  Transmission Date: 20120403
  Serious: Yes (Hospitalization, Other)
  Sender: FDA-Public Use
  Company Number: DKLU1075116

PATIENT
  Age: 25 Year
  Sex: Female

DRUGS (3)
  1. RUFINAMIDE (FUFINAMIDE) [Concomitant]
  2. ONFI [Suspect]
     Indication: LENNOX-GASTAUT SYNDROME
     Dosage: 40 MG MILLIGRAM(S), 1 IN 1 D
  3. FELBAMATE [Concomitant]

REACTIONS (2)
  - STATUS EPILEPTICUS [None]
  - MUSCLE RIGIDITY [None]
